FAERS Safety Report 12384335 (Version 1)
Quarter: 2016Q2

REPORT INFORMATION
  Report Type: Report from Study
  Country: US (occurrence: US)
  Receive Date: 20160519
  Receipt Date: 20160519
  Transmission Date: 20160815
  Serious: Yes (Other)
  Sender: FDA-Public Use
  Company Number: US-AMGEN-USASL2016062762

PATIENT
  Age: 56 Year
  Sex: Female

DRUGS (2)
  1. ENBREL [Suspect]
     Active Substance: ETANERCEPT
     Indication: RHEUMATOID ARTHRITIS
     Dosage: 25 MG, 2 TIMES/WK ON TUESDAYS AND THURSDAY
     Route: 065
  2. PREDNISONE. [Concomitant]
     Active Substance: PREDNISONE
     Dosage: UNK

REACTIONS (8)
  - Pneumonia [Unknown]
  - Infection [Unknown]
  - Lower respiratory tract infection [Unknown]
  - Hypersensitivity [Unknown]
  - Asthma [Unknown]
  - Pulmonary mass [Unknown]
  - Pyrexia [Unknown]
  - Continuous positive airway pressure [Unknown]
